FAERS Safety Report 6805522-1 (Version None)
Quarter: 2010Q2

REPORT INFORMATION
  Report Type: 
  Country: None (occurrence: None)
  Receive Date: 20100628
  Receipt Date: 20080201
  Transmission Date: 20101027
  Serious: No
  Sender: FDA-Public Use
  Company Number: US-PFIZER INC-2007097067

PATIENT
  Age: 63 Year
  Sex: Female

DRUGS (4)
  1. RELPAX [Suspect]
     Indication: HEADACHE
  2. HEPARIN SODIUM [Suspect]
  3. LIPITOR [Concomitant]
  4. GEODON [Concomitant]

REACTIONS (2)
  - HEADACHE [None]
  - MEDICATION ERROR [None]
